FAERS Safety Report 10181560 (Version 1)
Quarter: 2014Q2

REPORT INFORMATION
  Report Type: Spontaneous
  Country: BR (occurrence: BR)
  Receive Date: 20140519
  Receipt Date: 20140519
  Transmission Date: 20141212
  Serious: Yes (Hospitalization, Other)
  Sender: FDA-Public Use
  Company Number: BR-PFIZER INC-2014131985

PATIENT
  Age: 50 Year
  Sex: Female
  Weight: 54 kg

DRUGS (8)
  1. LYRICA [Suspect]
     Indication: FIBROMYALGIA
     Dosage: 75 MG (1 CAPSULE), 2X/DAY
     Route: 048
     Dates: start: 20130812
  2. CARBOLITIUM [Concomitant]
     Indication: BIPOLAR DISORDER
     Dosage: 1 CAPSULE OR TABLET TWICE DAILY
  3. NEURAL [Concomitant]
     Indication: BIPOLAR DISORDER
     Dosage: 1 CAPSUEL OR TABLET OF 25 MG, DAILY
     Dates: start: 2011
  4. CLONAZEPAM [Concomitant]
     Indication: SLEEP DISORDER
     Dosage: 1 CAPSULE OR TABLET TWICE DAILY
     Dates: start: 2004
  5. IBUPROFEN [Concomitant]
     Indication: MUSCULOSKELETAL PAIN
     Dosage: 3 CAPSULES OR TABLETS DAILY
     Dates: start: 2012
  6. PACO [Concomitant]
     Indication: MUSCULOSKELETAL PAIN
     Dosage: 4 CAPSULES OR TABLETS, DAILY
     Dates: start: 2012
  7. MYTEDON [Concomitant]
     Indication: NEUROMUSCULAR BLOCKING THERAPY
     Dosage: 3 CAPSULES OR TABLETS OF 10MG (30MG) DAILY
     Dates: start: 2008
  8. OXCARBAZEPINE [Concomitant]
     Indication: NEUROMUSCULAR BLOCKING THERAPY
     Dosage: 3 TABLETS OR CAPSULES OF 300MG (900 MG), DAILY
     Dates: start: 2010

REACTIONS (5)
  - Rotator cuff syndrome [Unknown]
  - Rotator cuff syndrome [Unknown]
  - Hip deformity [Unknown]
  - Bedridden [Not Recovered/Not Resolved]
  - Impaired work ability [Not Recovered/Not Resolved]
